FAERS Safety Report 18351909 (Version 1)
Quarter: 2020Q4

REPORT INFORMATION
  Report Type: Spontaneous
  Country: US (occurrence: US)
  Receive Date: 20201007
  Receipt Date: 20201007
  Transmission Date: 20210114
  Serious: No
  Sender: FDA-Public Use
  Company Number: US-TEVA-2020-US-1836797

PATIENT
  Sex: Male

DRUGS (6)
  1. SENOKOT 8.6 MG TABLET [Concomitant]
     Route: 065
  2. CLONAZEPAM 0.25 MG TAB RAPDIS [Concomitant]
     Route: 065
  3. BUPROPION. [Interacting]
     Active Substance: BUPROPION
     Route: 065
  4. LEXAPRO 20 MG TABLET [Concomitant]
     Route: 065
  5. COLACE 100 MG CAPSULE [Concomitant]
     Route: 065
  6. AUSTEDO [Suspect]
     Active Substance: DEUTETRABENAZINE
     Indication: HUNTINGTON^S DISEASE
     Dosage: 24 MILLIGRAM DAILY;
     Route: 048

REACTIONS (1)
  - Drug interaction [Recovered/Resolved]
